FAERS Safety Report 9432832 (Version 1)
Quarter: 2013Q3

REPORT INFORMATION
  Report Type: Spontaneous
  Country: US (occurrence: US)
  Receive Date: 20130731
  Receipt Date: 20130731
  Transmission Date: 20140515
  Serious: Yes (Hospitalization)
  Sender: FDA-Public Use
  Company Number: US-ROXANE LABORATORIES, INC.-2013-RO-01235RO

PATIENT
  Age: 39 Year
  Sex: Female

DRUGS (12)
  1. PREDNISONE [Suspect]
     Indication: UVEITIS
     Dosage: 5 MG
     Route: 048
     Dates: start: 20130613, end: 20130701
  2. HUMIRA [Suspect]
     Indication: UVEITIS
     Route: 058
     Dates: start: 20130304
  3. BACTRIM DS [Suspect]
     Indication: UVEITIS
     Dates: start: 20130624, end: 20130701
  4. BENADRYL [Concomitant]
     Indication: HYPERSENSITIVITY
  5. CLARITIN [Concomitant]
     Indication: HYPERSENSITIVITY
     Dates: start: 20130324, end: 20130430
  6. VITAMIN D [Concomitant]
     Indication: ROUTINE HEALTH MAINTENANCE
     Dates: start: 20100805
  7. CELLCEPT [Concomitant]
     Dates: start: 20130207
  8. HALOBETASOL PROPIONATE [Concomitant]
     Indication: DERMATITIS CONTACT
     Dates: start: 20130113
  9. TOP CARE POINSON IVY WASH [Concomitant]
     Indication: DERMATITIS CONTACT
     Dates: start: 20130113
  10. TECNU RASH RELIEF [Concomitant]
     Indication: DERMATITIS CONTACT
     Dates: start: 20130114
  11. SOLARCAINE BURN RELIEF ALOE EXTRA SPRAY [Concomitant]
     Indication: DERMATITIS CONTACT
     Dates: start: 20130114
  12. AMOXICILLIN/CLAVULIN [Concomitant]
     Indication: DERMATITIS CONTACT
     Dates: start: 20130619, end: 20130623

REACTIONS (1)
  - Meningitis aseptic [Unknown]
